FAERS Safety Report 9173399 (Version 1)
Quarter: 2013Q1

REPORT INFORMATION
  Report Type: Spontaneous
  Country: FR (occurrence: FR)
  Receive Date: 20130320
  Receipt Date: 20130320
  Transmission Date: 20140127
  Serious: Yes (Hospitalization)
  Sender: FDA-Public Use
  Company Number: FR-NOVOPROD-373455

PATIENT
  Age: 59 Year
  Sex: Female

DRUGS (15)
  1. VICTOZA [Suspect]
     Indication: INSULIN-REQUIRING TYPE 2 DIABETES MELLITUS
     Dosage: 1.8 MG, QD
     Route: 058
     Dates: start: 20121224, end: 20130101
  2. LEVEMIR FLEXPEN [Concomitant]
     Indication: INSULIN-REQUIRING TYPE 2 DIABETES MELLITUS
  3. FORTZAAR [Concomitant]
  4. ALPRAZOLAM [Concomitant]
  5. GLUCOPHAGE [Concomitant]
  6. KARDEGIC [Concomitant]
  7. SOLUPRED                           /00016201/ [Concomitant]
  8. ACETYLCYSTEINE [Concomitant]
  9. ATENOLOL [Concomitant]
  10. FLUOXETINE [Concomitant]
  11. INEGY [Concomitant]
  12. REPAGLINIDE [Concomitant]
  13. DERINOX                            /00249602/ [Concomitant]
  14. DETURGYLONE                        /00016201/ [Concomitant]
  15. MUCOMYST                           /00082801/ [Concomitant]

REACTIONS (1)
  - Lipase increased [Recovered/Resolved]
